FAERS Safety Report 10192774 (Version 2)
Quarter: 2014Q2

REPORT INFORMATION
  Report Type: Spontaneous
  Country: AU (occurrence: AU)
  Receive Date: 20140523
  Receipt Date: 20140523
  Transmission Date: 20141212
  Serious: Yes (Hospitalization, Other)
  Sender: FDA-Public Use
  Company Number: AU-PFIZER INC-2014087708

PATIENT
  Age: 21 Year
  Sex: Female

DRUGS (2)
  1. ZELDOX [Suspect]
     Indication: BIPOLAR DISORDER
     Dosage: 20 MG, 2X/DAY
     Route: 048
  2. ESCITALOPRAM [Concomitant]
     Indication: BIPOLAR DISORDER
     Dosage: 10 MG, 2X/DAY
     Route: 048

REACTIONS (11)
  - Serotonin syndrome [Unknown]
  - Hyperthyroidism [Unknown]
  - Agitation [Unknown]
  - Middle insomnia [Unknown]
  - Abnormal dreams [Unknown]
  - Hyperhidrosis [Unknown]
  - Logorrhoea [Unknown]
  - Nervousness [Unknown]
  - Somnolence [Unknown]
  - Fatigue [Unknown]
  - Psychomotor hyperactivity [Unknown]
